FAERS Safety Report 21639291 (Version 1)
Quarter: 2022Q4

REPORT INFORMATION
  Report Type: Spontaneous
  Country: CN (occurrence: CN)
  Receive Date: 20221124
  Receipt Date: 20221124
  Transmission Date: 20230113
  Serious: Yes (Other)
  Sender: FDA-Public Use
  Company Number: CN-JNJFOC-20221148134

PATIENT
  Age: 1 Year
  Sex: Male
  Weight: 12 kg

DRUGS (2)
  1. MOTRIN INFANTS [Suspect]
     Active Substance: IBUPROFEN
     Indication: Febrile convulsion
     Route: 048
     Dates: start: 20221105, end: 20221106
  2. ACETAMINOPHEN [Concomitant]
     Active Substance: ACETAMINOPHEN
     Indication: Febrile convulsion
     Route: 054
     Dates: start: 20221105, end: 20221105

REACTIONS (7)
  - Depressed level of consciousness [Unknown]
  - Gaze palsy [Unknown]
  - Trismus [Unknown]
  - Seizure [Unknown]
  - Dyspnoea [Unknown]
  - Fatigue [Unknown]
  - Muscle twitching [Unknown]

NARRATIVE: CASE EVENT DATE: 20221106
